FAERS Safety Report 13033711 (Version 1)
Quarter: 2016Q4

REPORT INFORMATION
  Report Type: Spontaneous
  Country: GB (occurrence: GB)
  Receive Date: 20161216
  Receipt Date: 20161216
  Transmission Date: 20170207
  Serious: Yes (Other)
  Sender: FDA-Public Use
  Company Number: GB-ACCORD-046370

PATIENT
  Age: 48 Year
  Sex: Male
  Weight: 68.8 kg

DRUGS (17)
  1. SEVOFLURANE BAXTER [Suspect]
     Active Substance: SEVOFLURANE
     Indication: ANAESTHESIA PROCEDURE
     Dosage: 100% INHALATION VAPOUR, LIQUID
     Dates: start: 20160817, end: 20160817
  2. ONDANSETRON [Suspect]
     Active Substance: ONDANSETRON
     Indication: PRODUCT USED FOR UNKNOWN INDICATION
     Dosage: AT 12:00 H
     Route: 065
     Dates: start: 20160817, end: 20160817
  3. DESFLURANE. [Suspect]
     Active Substance: DESFLURANE
     Indication: ANAESTHESIA PROCEDURE
     Dosage: MAINTENANCE
     Route: 055
     Dates: start: 20160817, end: 20160817
  4. EPHEDRINE. [Suspect]
     Active Substance: EPHEDRINE
     Indication: PRODUCT USED FOR UNKNOWN INDICATION
     Dosage: AT 12:00 H
     Dates: start: 20160817, end: 20160817
  5. MORPHINE [Suspect]
     Active Substance: MORPHINE
     Indication: PRODUCT USED FOR UNKNOWN INDICATION
     Dosage: AT 12:00 H
     Dates: start: 20160817, end: 20160817
  6. PROPOFOL. [Suspect]
     Active Substance: PROPOFOL
     Indication: ANAESTHESIA PROCEDURE
     Dosage: PRE-INDUCTION
     Route: 065
     Dates: start: 20160817, end: 20160817
  7. TIOTROPIUM/TIOTROPIUM BROMIDE [Concomitant]
  8. ATRACURIUM [Suspect]
     Active Substance: ATRACURIUM
     Indication: ANAESTHESIA PROCEDURE
     Dates: start: 20150528
  9. DEXAMETHASONE. [Suspect]
     Active Substance: DEXAMETHASONE
     Indication: PRODUCT USED FOR UNKNOWN INDICATION
     Dosage: AT 09:15 H
     Dates: start: 20160817, end: 20160817
  10. PARACETAMOL [Suspect]
     Active Substance: ACETAMINOPHEN
     Indication: PRODUCT USED FOR UNKNOWN INDICATION
     Route: 065
     Dates: start: 20160817, end: 20160817
  11. ROCURONIUM/ROCURONIUM BROMIDE [Suspect]
     Active Substance: ROCURONIUM BROMIDE
     Indication: ANAESTHESIA PROCEDURE
     Dosage: INDUCTION
     Dates: start: 20160817, end: 20160817
  12. SERETIDE [Concomitant]
     Active Substance: FLUTICASONE PROPIONATE\SALMETEROL XINAFOATE
  13. FENTANYL. [Suspect]
     Active Substance: FENTANYL
     Indication: ANAESTHESIA PROCEDURE
     Dosage: PRE-INDUCTION
     Route: 065
     Dates: start: 20160817, end: 20160817
  14. DICLOFENAC [Suspect]
     Active Substance: DICLOFENAC
     Indication: PRODUCT USED FOR UNKNOWN INDICATION
     Dosage: AT 10:00 H
     Dates: start: 20160817, end: 20160817
  15. REMIFENTANIL/REMIFENTANIL HYDROCHLORIDE [Suspect]
     Active Substance: REMIFENTANIL HYDROCHLORIDE
     Indication: PRODUCT USED FOR UNKNOWN INDICATION
     Dosage: STRENGTH: 2MG/40ML, MULTIPLE DOSES THROUGHOUT SURGERY
     Dates: start: 20160817, end: 20160817
  16. SALBUTAMOL [Concomitant]
     Active Substance: ALBUTEROL
  17. MIDAZOLAM [Suspect]
     Active Substance: MIDAZOLAM\MIDAZOLAM HYDROCHLORIDE
     Indication: ANAESTHESIA PROCEDURE
     Dates: start: 20160702

REACTIONS (1)
  - Hyperkalaemia [Recovered/Resolved]

NARRATIVE: CASE EVENT DATE: 20160817
